FAERS Safety Report 9328637 (Version 1)
Quarter: 2013Q2

REPORT INFORMATION
  Report Type: Spontaneous
  Country: US (occurrence: US)
  Receive Date: 20130604
  Receipt Date: 20130604
  Transmission Date: 20140414
  Serious: Yes (Other)
  Sender: FDA-Public Use
  Company Number: US-SANOFI-AVENTIS-2013SA008915

PATIENT
  Age: 63 Year
  Sex: Female

DRUGS (5)
  1. SOLOSTAR [Suspect]
     Indication: TYPE 2 DIABETES MELLITUS
  2. LANTUS SOLOSTAR [Suspect]
     Indication: TYPE 2 DIABETES MELLITUS
     Dosage: DOSE 35 TO 40 UNITS
  3. GLIPIZIDE [Concomitant]
  4. METFORMIN [Concomitant]
  5. HUMALOG [Concomitant]
     Dosage: DOSE:8 UNIT(S)

REACTIONS (3)
  - Hypoglycaemia [Recovered/Resolved]
  - Tremor [Recovered/Resolved]
  - Blood glucose increased [Unknown]
